FAERS Safety Report 8424107-7 (Version None)
Quarter: 2012Q2

REPORT INFORMATION
  Report Type: 
  Country: None (occurrence: None)
  Receive Date: 20120608
  Receipt Date: 20120206
  Transmission Date: 20120825
  Serious: No
  Sender: FDA-Public Use
  Company Number: US-ASTRAZENECA-2007UW01385

PATIENT
  Age: 69 Year
  Sex: Female
  Weight: 53.5 kg

DRUGS (6)
  1. PULMICORT FLEXHALER [Suspect]
     Indication: ASTHMA
     Dosage: 1 PUFF PER DAY
     Route: 055
  2. PULMICORT FLEXHALER [Suspect]
     Dosage: 2 PER DAY
     Route: 055
  3. DEPAKOTE [Concomitant]
  4. NEXIUM [Suspect]
     Indication: GASTRIC ULCER
     Route: 048
  5. NEXIUM [Suspect]
     Indication: GASTROOESOPHAGEAL REFLUX DISEASE
     Route: 048
  6. ASTELIN PRO [Concomitant]

REACTIONS (2)
  - HEADACHE [None]
  - CHEST PAIN [None]
